FAERS Safety Report 8740504 (Version 2)
Quarter: 2013Q4

REPORT INFORMATION
  Report Type: Spontaneous
  Country: US (occurrence: US)
  Receive Date: 20120823
  Receipt Date: 20131101
  Transmission Date: 20140711
  Serious: No
  Sender: FDA-Public Use
  Company Number: US-009507513-1208USA006720

PATIENT
  Age: 61 Year
  Sex: Female

DRUGS (10)
  1. PEGINTRON [Suspect]
     Dosage: 150 MCG/0.5ML, QW
     Route: 058
  2. PEGINTRON [Suspect]
     Dosage: 120 MICROGRAM, EVERY EVERY WEEK
     Dates: start: 20120806
  3. PRISTIQ [Concomitant]
  4. XANAX [Concomitant]
  5. AMBIEN [Concomitant]
  6. RIBASPHERE [Concomitant]
  7. SEROQUEL [Concomitant]
  8. PROPRANOLOL HYDROCHLORIDE [Concomitant]
  9. PRILOSEC [Concomitant]
  10. CLONAZEPAM [Concomitant]

REACTIONS (1)
  - Lung infection [Recovering/Resolving]
